FAERS Safety Report 23958500 (Version 1)
Quarter: 2024Q2

REPORT INFORMATION
  Report Type: Spontaneous
  Country: PT (occurrence: PT)
  Receive Date: 20240610
  Receipt Date: 20240610
  Transmission Date: 20240716
  Serious: Yes (Other)
  Sender: FDA-Public Use
  Company Number: PT-GILEAD-2024-0674887

PATIENT
  Age: 70 Year
  Sex: Female

DRUGS (1)
  1. TRODELVY [Suspect]
     Active Substance: SACITUZUMAB GOVITECAN-HZIY
     Indication: Breast cancer metastatic
     Dosage: UNK
     Route: 065
     Dates: start: 202310, end: 202405

REACTIONS (3)
  - Disease progression [Unknown]
  - Neutropenia [Unknown]
  - Cholinergic syndrome [Unknown]

NARRATIVE: CASE EVENT DATE: 20240528
